FAERS Safety Report 7497373-2 (Version None)
Quarter: 2011Q2

REPORT INFORMATION
  Report Type: 
  Country: None (occurrence: None)
  Receive Date: 20110523
  Receipt Date: 20110201
  Transmission Date: 20111010
  Serious: No
  Sender: FDA-Public Use
  Company Number: US-NOVEN-11US001716

PATIENT
  Sex: Male
  Weight: 51.701 kg

DRUGS (4)
  1. CLONIDINE [Concomitant]
     Indication: ATTENTION DEFICIT/HYPERACTIVITY DISORDER
     Dosage: 0.2 MG, UNKNOWN
     Route: 048
  2. DAYTRANA [Suspect]
     Indication: ATTENTION DEFICIT/HYPERACTIVITY DISORDER
     Dosage: 20 MG, UNKNOWN
     Route: 062
     Dates: start: 20110101
  3. STRATTERA [Concomitant]
     Indication: ATTENTION DEFICIT/HYPERACTIVITY DISORDER
     Dosage: 60 MG, UNKNOWN
     Route: 048
  4. ABILIFY [Concomitant]
     Indication: PRODUCT USED FOR UNKNOWN INDICATION
     Dosage: 30 MG, UNKNOWN
     Route: 048

REACTIONS (3)
  - PRODUCT QUALITY ISSUE [None]
  - WRONG TECHNIQUE IN DRUG USAGE PROCESS [None]
  - NO ADVERSE EVENT [None]
